FAERS Safety Report 7004990-2 (Version None)
Quarter: 2010Q3

REPORT INFORMATION
  Report Type: 
  Country: None (occurrence: None)
  Receive Date: 20100921
  Receipt Date: 20100913
  Transmission Date: 20110219
  Serious: Yes (Other)
  Sender: FDA-Public Use
  Company Number: GR-BAXTER-2010BH023555

PATIENT
  Age: 56 Year
  Sex: Female
  Weight: 75 kg

DRUGS (7)
  1. CYCLOPHOSPHAMIDE [Suspect]
     Indication: BREAST CANCER
     Route: 042
     Dates: start: 20070221, end: 20070221
  2. METHOTREXATE [Suspect]
     Indication: BREAST CANCER
     Route: 042
     Dates: start: 20070221, end: 20070221
  3. FLUOROURACIL [Suspect]
     Indication: BREAST CANCER
     Route: 042
     Dates: start: 20070221, end: 20070221
  4. GRANISETRON HCL [Concomitant]
     Indication: NAUSEA
     Route: 042
     Dates: start: 20070221, end: 20070221
  5. RANITIDINE [Concomitant]
     Indication: ABDOMINAL DISCOMFORT
     Route: 042
     Dates: start: 20070221, end: 20070221
  6. DEXAMETHASONE [Concomitant]
     Indication: ANTIALLERGIC THERAPY
     Route: 042
     Dates: start: 20070221, end: 20070221
  7. TENORETIC 100 [Concomitant]
     Indication: HYPERTENSION
     Route: 065

REACTIONS (1)
  - HEPATIC ENZYME INCREASED [None]
